FAERS Safety Report 8282193-1 (Version None)
Quarter: 2012Q1

REPORT INFORMATION
  Report Type: 
  Country: None (occurrence: None)
  Receive Date: 20120323
  Receipt Date: 20120315
  Transmission Date: 20120608
  Serious: Yes (Hospitalization)
  Sender: FDA-Public Use
  Company Number: 2012031120

PATIENT
  Age: 59 Year
  Sex: Female
  Weight: 49.8957 kg

DRUGS (31)
  1. ESTRADIOL [Concomitant]
  2. LASIX [Concomitant]
  3. VICODIN [Concomitant]
  4. CALCIUM CARBONATE [Concomitant]
  5. ARICEPT [Concomitant]
  6. LOVASTATIN [Concomitant]
  7. FENTANYL [Concomitant]
  8. VITAMIN B (VITAMIN B) [Concomitant]
  9. TOPAMAX [Concomitant]
  10. HIZENTRA [Suspect]
     Indication: HYPOGAMMAGLOBULINAEMIA
     Dosage: SEE IMAGE
     Route: 058
     Dates: start: 20120218, end: 20120218
  11. HIZENTRA [Suspect]
     Indication: MULTIPLE SCLEROSIS
     Dosage: SEE IMAGE
     Route: 058
     Dates: start: 20120218, end: 20120218
  12. HIZENTRA [Suspect]
     Indication: CELLULITIS
     Dosage: SEE IMAGE
     Route: 058
     Dates: start: 20120218, end: 20120218
  13. HIZENTRA [Suspect]
     Indication: IMMUNODEFICIENCY COMMON VARIABLE
     Dosage: SEE IMAGE
     Route: 058
     Dates: start: 20120218, end: 20120218
  14. HIZENTRA [Suspect]
     Indication: HYPOGAMMAGLOBULINAEMIA
     Dosage: SEE IMAGE
     Route: 058
     Dates: start: 20120117, end: 20120117
  15. HIZENTRA [Suspect]
     Indication: MULTIPLE SCLEROSIS
     Dosage: SEE IMAGE
     Route: 058
     Dates: start: 20120117, end: 20120117
  16. HIZENTRA [Suspect]
     Indication: CELLULITIS
     Dosage: SEE IMAGE
     Route: 058
     Dates: start: 20120117, end: 20120117
  17. HIZENTRA [Suspect]
     Indication: IMMUNODEFICIENCY COMMON VARIABLE
     Dosage: SEE IMAGE
     Route: 058
     Dates: start: 20120117, end: 20120117
  18. HIZENTRA [Suspect]
     Indication: HYPOGAMMAGLOBULINAEMIA
     Dosage: SEE IMAGE
     Route: 058
     Dates: start: 20111227, end: 20111227
  19. HIZENTRA [Suspect]
     Indication: MULTIPLE SCLEROSIS
     Dosage: SEE IMAGE
     Route: 058
     Dates: start: 20111227, end: 20111227
  20. HIZENTRA [Suspect]
     Indication: CELLULITIS
     Dosage: SEE IMAGE
     Route: 058
     Dates: start: 20111227, end: 20111227
  21. HIZENTRA [Suspect]
     Indication: IMMUNODEFICIENCY COMMON VARIABLE
     Dosage: SEE IMAGE
     Route: 058
     Dates: start: 20111227, end: 20111227
  22. HIZENTRA [Suspect]
     Indication: HYPOGAMMAGLOBULINAEMIA
     Dosage: SEE IMAGE
     Route: 058
     Dates: start: 20111223
  23. HIZENTRA [Suspect]
     Indication: MULTIPLE SCLEROSIS
     Dosage: SEE IMAGE
     Route: 058
     Dates: start: 20111223
  24. HIZENTRA [Suspect]
     Indication: CELLULITIS
     Dosage: SEE IMAGE
     Route: 058
     Dates: start: 20111223
  25. HIZENTRA [Suspect]
     Indication: IMMUNODEFICIENCY COMMON VARIABLE
     Dosage: SEE IMAGE
     Route: 058
     Dates: start: 20111223
  26. HIZENTRA [Suspect]
  27. PROZAC [Concomitant]
  28. PROCHLOPERZAINE (PROCLORPERAZINE) [Concomitant]
  29. VITAMIN D [Concomitant]
  30. PRILOSEC [Concomitant]
  31. DIAZEPAM [Concomitant]

REACTIONS (7)
  - NAUSEA [None]
  - HYPERTENSION [None]
  - VOMITING [None]
  - OFF LABEL USE [None]
  - RASH [None]
  - HYPOTENSION [None]
  - DIARRHOEA [None]
